FAERS Safety Report 14153921 (Version 3)
Quarter: 2018Q3

REPORT INFORMATION
  Report Type: Spontaneous
  Country: US (occurrence: US)
  Receive Date: 20171102
  Receipt Date: 20180907
  Transmission Date: 20181010
  Serious: No
  Sender: FDA-Public Use
  Company Number: US-BAYER-2017-210506

PATIENT
  Age: 44 Year
  Sex: Female

DRUGS (2)
  1. CLIMARA PRO [Suspect]
     Active Substance: ESTRADIOL\LEVONORGESTREL
     Route: 062
  2. CLIMARA PRO [Suspect]
     Active Substance: ESTRADIOL\LEVONORGESTREL
     Dosage: UNK
     Route: 062

REACTIONS (6)
  - Dysgeusia [None]
  - Product physical issue [None]
  - Product adhesion issue [None]
  - Device breakage [None]
  - Wrong technique in product usage process [None]
  - Product physical issue [None]

NARRATIVE: CASE EVENT DATE: 20180831
